FAERS Safety Report 6128601-3 (Version None)
Quarter: 2009Q1

REPORT INFORMATION
  Report Type: 
  Country: None (occurrence: None)
  Receive Date: 20090323
  Receipt Date: 20090319
  Transmission Date: 20090719
  Serious: Yes (Life-Threatening, Hospitalization)
  Sender: FDA-Public Use
  Company Number: US-B.I. PHARMACEUTICALS,INC./RIDGEFIELD-2009-BP-02078BP

PATIENT
  Age: 75 Year
  Sex: Male
  Weight: 105 kg

DRUGS (1)
  1. SPIRIVA [Suspect]

REACTIONS (4)
  - HEAD INJURY [None]
  - SYNCOPE [None]
  - URINARY RETENTION [None]
  - URINARY TRACT INFECTION [None]
